FAERS Safety Report 7087075-9 (Version None)
Quarter: 2010Q4

REPORT INFORMATION
  Report Type: 
  Country: None (occurrence: None)
  Receive Date: 20101106
  Receipt Date: 20101026
  Transmission Date: 20110411
  Serious: No
  Sender: FDA-Public Use
  Company Number: US-WYE-H18387810

PATIENT
  Sex: Female
  Weight: 75.82 kg

DRUGS (4)
  1. PRISTIQ [Suspect]
     Indication: DEPRESSION
     Dates: start: 20101023
  2. VERAPAMIL [Concomitant]
  3. ATIVAN [Suspect]
     Indication: INSOMNIA
     Dosage: UNKNOWN
     Dates: start: 20101023
  4. MICARDIS [Concomitant]

REACTIONS (4)
  - CONDITION AGGRAVATED [None]
  - FATIGUE [None]
  - INSOMNIA [None]
  - NAUSEA [None]
